FAERS Safety Report 9479525 (Version 2)
Quarter: 2013Q3

REPORT INFORMATION
  Report Type: Spontaneous
  Country: DE (occurrence: DE)
  Receive Date: 20130827
  Receipt Date: 20130827
  Transmission Date: 20140515
  Serious: Yes (Hospitalization)
  Sender: FDA-Public Use
  Company Number: DE-B.I. PHARMACEUTICALS,INC./RIDGEFIELD-2013-DE-02027DE

PATIENT
  Sex: Female
  Weight: 56 kg

DRUGS (8)
  1. PRADAXA [Suspect]
     Indication: ATRIAL FIBRILLATION
     Dosage: 220 MG
     Dates: start: 20130429
  2. PRADAXA [Suspect]
     Indication: ARRHYTHMIA
     Dosage: 220 MG
     Dates: start: 20121212, end: 20130711
  3. METOPROLOL [Concomitant]
  4. L-THYROX [Concomitant]
     Dosage: 25 MG
     Route: 048
  5. TOREM [Concomitant]
     Dosage: 10 NR
     Route: 048
  6. EXPANDED ANTIBIOTIC THERAPY [Concomitant]
     Indication: HYPONATRAEMIA
  7. CORTISONE [Concomitant]
     Indication: PRURITUS
  8. CORTISONE [Concomitant]
     Indication: RASH

REACTIONS (7)
  - Rash [Recovered/Resolved]
  - Pruritus [Recovered/Resolved]
  - Haemorrhage subcutaneous [Recovered/Resolved]
  - Hyponatraemia [Recovered/Resolved]
  - Rash [Unknown]
  - Pruritus [Unknown]
  - Haematoma [Unknown]
